FAERS Safety Report 4778176-6 (Version None)
Quarter: 2005Q3

REPORT INFORMATION
  Report Type: 
  Country: None (occurrence: None)
  Receive Date: 20050923
  Receipt Date: 20050923
  Transmission Date: 20060218
  Serious: Yes (Other)
  Sender: FDA-Public Use
  Company Number: None

PATIENT
  Age: 49 Year
  Sex: Male
  Weight: 73.5 kg

DRUGS (11)
  1. VENLAFAXINE HCL [Suspect]
  2. TRAZODONE HCL [Concomitant]
  3. BUPROPION HCL [Concomitant]
  4. SILDENAFIL CITRATE [Concomitant]
  5. CODEINE 30/ACETAMINOPHEN [Concomitant]
  6. ALBUTEROL [Concomitant]
  7. VENLAFAXINE HCL [Concomitant]
  8. ALBUTEROL SULFATE AND IPRATROPIUM BROMIDE [Concomitant]
  9. IBUPROFEN [Concomitant]
  10. VITAMIN B COMPLEX/VITAMIN C CAP [Concomitant]
  11. DOYCYCLINE HYCLATE [Concomitant]

REACTIONS (1)
  - DIZZINESS [None]
